FAERS Safety Report 9407967 (Version 1)
Quarter: 2013Q3

REPORT INFORMATION
  Report Type: Spontaneous
  Country: US (occurrence: None)
  Receive Date: 20130717
  Receipt Date: 20130717
  Transmission Date: 20140515
  Serious: Yes (Other)
  Sender: FDA-Public Use
  Company Number: None

PATIENT
  Age: 58 Year
  Sex: Female

DRUGS (3)
  1. SIMPONI [Suspect]
     Dosage: INJECT 50 MG UNDER THE SKIN MONTHLY
     Dates: start: 20130506, end: 20130705
  2. PREDNISONE [Concomitant]
  3. HYDROXYCHLOROQUINE [Concomitant]

REACTIONS (1)
  - Laboratory test abnormal [None]
